FAERS Safety Report 25275730 (Version 2)
Quarter: 2025Q2

REPORT INFORMATION
  Report Type: Report from Study
  Country: US (occurrence: US)
  Receive Date: 20250507
  Receipt Date: 20250520
  Transmission Date: 20250716
  Serious: Yes (Other)
  Sender: ABBVIE
  Company Number: US-ABBVIE-6264214

PATIENT
  Sex: Female

DRUGS (1)
  1. SKYRIZI [Suspect]
     Active Substance: RISANKIZUMAB-RZAA
     Indication: Psoriasis
     Dosage: STRENGTH: 600 MILLIGRAM.
     Route: 042
     Dates: start: 202410

REACTIONS (2)
  - Carpal tunnel syndrome [Recovering/Resolving]
  - Cyst [Recovering/Resolving]
